FAERS Safety Report 4893445-7 (Version None)
Quarter: 2006Q1

REPORT INFORMATION
  Report Type: 
  Country: None (occurrence: None)
  Receive Date: 20060127
  Receipt Date: 20060124
  Transmission Date: 20060701
  Serious: Yes (Other)
  Sender: FDA-Public Use
  Company Number: PHEH2006US01275

PATIENT
  Age: 88 Year
  Sex: Female

DRUGS (3)
  1. ELIDEL [Suspect]
     Indication: PRURITUS
     Dosage: UNK, BID
     Route: 061
     Dates: start: 20030101, end: 20060116
  2. CORTISONE ACETATE TAB [Concomitant]
     Indication: PRURITUS
     Route: 030
     Dates: start: 20030101
  3. LEVOXYL [Concomitant]
     Indication: HYPOTHYROIDISM
     Dosage: 0.05 UNK, QD
     Route: 048
     Dates: start: 20000101

REACTIONS (4)
  - DIFFICULTY IN WALKING [None]
  - DRUG INEFFECTIVE [None]
  - GROIN PAIN [None]
  - LYMPHOMA [None]
